FAERS Safety Report 4355981-1 (Version None)
Quarter: 2004Q2

REPORT INFORMATION
  Report Type: 
  Country: None (occurrence: None)
  Receive Date: 20040507
  Receipt Date: 20040507
  Transmission Date: 20050107
  Serious: Yes (Hospitalization)
  Sender: FDA-Public Use
  Company Number: None

PATIENT
  Age: 51 Year
  Sex: Female
  Weight: 74.5 kg

DRUGS (1)
  1. LORAZEPAM [Suspect]
     Indication: POST-TRAUMATIC STRESS DISORDER
     Dosage: 1 MG PO TID PRN
     Route: 048

REACTIONS (5)
  - ABNORMAL BEHAVIOUR [None]
  - ANXIETY [None]
  - DEPRESSION [None]
  - INSOMNIA [None]
  - SOMNOLENCE [None]
